FAERS Safety Report 5524134-3 (Version None)
Quarter: 2007Q4

REPORT INFORMATION
  Report Type: 
  Country: None (occurrence: None)
  Receive Date: 20071121
  Receipt Date: 20071119
  Transmission Date: 20080405
  Serious: Yes (Hospitalization, Disabling, Other)
  Sender: FDA-Public Use
  Company Number: US-MERCK-0711USA03957

PATIENT
  Age: 48 Year
  Sex: Female

DRUGS (9)
  1. JANUVIA [Suspect]
     Indication: TYPE 2 DIABETES MELLITUS
     Route: 048
     Dates: start: 20070526, end: 20071001
  2. BYETTA [Suspect]
     Route: 065
     Dates: start: 20070101
  3. GLUCOPHAGE [Concomitant]
     Route: 065
  4. TRICOR [Concomitant]
     Route: 065
  5. TORSEMIDE [Concomitant]
     Route: 065
  6. CRESTOR [Concomitant]
     Route: 065
  7. DIOVAN [Concomitant]
     Route: 065
  8. PAXIL [Concomitant]
     Route: 065
  9. LANTUS [Concomitant]
     Route: 065

REACTIONS (3)
  - APHTHOUS STOMATITIS [None]
  - PANCREATITIS [None]
  - RASH [None]
